FAERS Safety Report 14745057 (Version 9)
Quarter: 2025Q1

REPORT INFORMATION
  Report Type: Spontaneous
  Country: US (occurrence: US)
  Receive Date: 20180411
  Receipt Date: 20250220
  Transmission Date: 20250409
  Serious: No
  Sender: PFIZER
  Company Number: US-PFIZER INC-2018146529

PATIENT
  Age: 6 Year
  Sex: Male

DRUGS (9)
  1. ELELYSO [Suspect]
     Active Substance: TALIGLUCERASE ALFA
     Indication: Gaucher^s disease
     Dates: start: 20180313
  2. ELELYSO [Suspect]
     Active Substance: TALIGLUCERASE ALFA
     Dates: start: 20180329
  3. ELELYSO [Suspect]
     Active Substance: TALIGLUCERASE ALFA
  4. ELELYSO [Suspect]
     Active Substance: TALIGLUCERASE ALFA
  5. ELELYSO [Suspect]
     Active Substance: TALIGLUCERASE ALFA
  6. ELELYSO [Suspect]
     Active Substance: TALIGLUCERASE ALFA
  7. ELELYSO [Suspect]
     Active Substance: TALIGLUCERASE ALFA
  8. ELELYSO [Suspect]
     Active Substance: TALIGLUCERASE ALFA
  9. ELELYSO [Suspect]
     Active Substance: TALIGLUCERASE ALFA

REACTIONS (4)
  - Pyrexia [Recovered/Resolved]
  - Erythema [Recovered/Resolved]
  - Pain in extremity [Recovered/Resolved]
  - Nasopharyngitis [Recovered/Resolved]

NARRATIVE: CASE EVENT DATE: 20180313
